FAERS Safety Report 5630306-X (Version None)
Quarter: 2008Q1

REPORT INFORMATION
  Report Type: 
  Country: None (occurrence: None)
  Receive Date: 20080213
  Receipt Date: 20080204
  Transmission Date: 20080703
  Serious: Yes (Hospitalization)
  Sender: FDA-Public Use
  Company Number: 2008US000458

PATIENT
  Age: 15 Year
  Sex: Male

DRUGS (1)
  1. PROGRAF [Suspect]
     Indication: LIVER AND SMALL INTESTINE TRANSPLANT
     Dosage: ORAL, ORAL
     Route: 048

REACTIONS (8)
  - BACTERAEMIA [None]
  - DISEASE RECURRENCE [None]
  - ENTEROCUTANEOUS FISTULA [None]
  - FEEDING TUBE COMPLICATION [None]
  - GASTROENTERITIS NOROVIRUS [None]
  - GASTROINTESTINAL STOMA COMPLICATION [None]
  - PNEUMONIA [None]
  - URINARY TRACT INFECTION [None]
